FAERS Safety Report 16344408 (Version 3)
Quarter: 2019Q3

REPORT INFORMATION
  Report Type: Report from Study
  Country: CN (occurrence: CN)
  Receive Date: 20190522
  Receipt Date: 20190805
  Transmission Date: 20191004
  Serious: Yes (Other)
  Sender: FDA-Public Use
  Company Number: CN-ROCHE-2323593

PATIENT
  Age: 62 Year
  Sex: Male
  Weight: 76 kg

DRUGS (1)
  1. AVASTIN [Suspect]
     Active Substance: BEVACIZUMAB
     Indication: NON-SMALL CELL LUNG CANCER
     Route: 041
     Dates: start: 20170927

REACTIONS (3)
  - Renal injury [Unknown]
  - Protein urine present [Recovering/Resolving]
  - Protein urine present [Recovering/Resolving]

NARRATIVE: CASE EVENT DATE: 20190508
